FAERS Safety Report 13188661 (Version 2)
Quarter: 2017Q1

REPORT INFORMATION
  Report Type: Spontaneous
  Country: JP (occurrence: JP)
  Receive Date: 20170206
  Receipt Date: 20170209
  Transmission Date: 20170428
  Serious: Yes (Hospitalization, Other)
  Sender: FDA-Public Use
  Company Number: JP-GLAXOSMITHKLINE-JP2017JPN012862

PATIENT
  Age: 10 Year
  Sex: Male

DRUGS (5)
  1. CLARITHROMYCIN. [Concomitant]
     Active Substance: CLARITHROMYCIN
     Dosage: UNK
     Dates: start: 20170126
  2. HUSTAZOL [Concomitant]
     Active Substance: CLOPERASTINE
     Dosage: UNK
     Dates: start: 20170126
  3. RELENZA [Suspect]
     Active Substance: ZANAMIVIR
     Indication: INFLUENZA
     Dosage: 10 MG, BID
     Route: 055
     Dates: start: 20170126, end: 20170127
  4. MUCOSTA [Concomitant]
     Active Substance: REBAMIPIDE
     Dosage: UNK
     Dates: start: 20170126
  5. ACETAMINOPHEN. [Concomitant]
     Active Substance: ACETAMINOPHEN
     Dosage: UNK
     Dates: start: 20170126

REACTIONS (9)
  - Confusional state [Recovered/Resolved]
  - Hyporesponsive to stimuli [Recovered/Resolved]
  - Traumatic haemorrhage [Recovered/Resolved]
  - Feeling abnormal [Recovered/Resolved]
  - Fall [Recovered/Resolved]
  - Abnormal behaviour [Recovered/Resolved]
  - Intentional self-injury [Recovered/Resolved]
  - Dysarthria [Recovered/Resolved]
  - Neck injury [Recovered/Resolved]

NARRATIVE: CASE EVENT DATE: 20170127
